FAERS Safety Report 8501763 (Version 3)
Quarter: 2014Q1

REPORT INFORMATION
  Report Type: Spontaneous
  Country: US (occurrence: US)
  Receive Date: 20120410
  Receipt Date: 20140106
  Transmission Date: 20141002
  Serious: Yes (Hospitalization)
  Sender: FDA-Public Use
  Company Number: US-BAYER-2012-032606

PATIENT
  Age: 36 Year
  Sex: Female
  Weight: 71.2 kg

DRUGS (2)
  1. YASMIN [Suspect]
     Indication: CONTRACEPTION
     Dosage: UNK
     Dates: start: 200907, end: 201008
  2. IBUPROFEN [Concomitant]
     Dosage: 800 MG,1 TABLET EVERY 8 HOURS AS NEEDED
     Route: 048

REACTIONS (7)
  - Gallbladder disorder [None]
  - Cholecystitis chronic [None]
  - Abdominal pain [None]
  - Nausea [None]
  - Vomiting [None]
  - Injury [None]
  - Pain [None]
